FAERS Safety Report 5521146-0 (Version None)
Quarter: 2007Q4

REPORT INFORMATION
  Report Type: 
  Country: None (occurrence: None)
  Receive Date: 20071119
  Receipt Date: 20071107
  Transmission Date: 20080405
  Serious: Yes (Other)
  Sender: FDA-Public Use
  Company Number: US-AVENTIS-200717968US

PATIENT
  Sex: Female

DRUGS (7)
  1. LANTUS [Suspect]
     Dates: start: 20031101
  2. ACTOS [Suspect]
     Dosage: DOSE: UNK
  3. WELLBUTRIN [Concomitant]
     Dosage: DOSE: UNK
  4. BYETTA [Concomitant]
     Dosage: DOSE: UNK
  5. DIOVAN [Concomitant]
     Dosage: DOSE: UNK
  6. ASPIRIN [Concomitant]
     Dosage: DOSE: UNK
  7. PLAVIX [Concomitant]
     Dosage: DOSE: UNK

REACTIONS (6)
  - CORONARY ARTERY DISEASE [None]
  - HYPOGLYCAEMIA [None]
  - INJECTION SITE HAEMORRHAGE [None]
  - INJECTION SITE IRRITATION [None]
  - INJECTION SITE PAIN [None]
  - WEIGHT INCREASED [None]
